FAERS Safety Report 16132374 (Version 1)
Quarter: 2019Q1

REPORT INFORMATION
  Report Type: Spontaneous
  Country: US (occurrence: US)
  Receive Date: 20190329
  Receipt Date: 20190329
  Transmission Date: 20190418
  Serious: No
  Sender: FDA-Public Use
  Company Number: US-GLAXOSMITHKLINE-US2019052717

PATIENT
  Sex: Female

DRUGS (1)
  1. ABREVA [Suspect]
     Active Substance: DOCOSANOL
     Indication: ORAL HERPES
     Dosage: 1 UNK, UNK, 5 TIMES A DAY
     Route: 061
     Dates: start: 20190309

REACTIONS (4)
  - Application site pain [Recovering/Resolving]
  - Drug effect incomplete [Unknown]
  - Incorrect product administration duration [Unknown]
  - Adverse drug reaction [Recovering/Resolving]
